FAERS Safety Report 9683533 (Version 1)
Quarter: 2013Q4

REPORT INFORMATION
  Report Type: Report from Study
  Country: US (occurrence: US)
  Receive Date: 20131112
  Receipt Date: 20131112
  Transmission Date: 20140711
  Serious: Yes (Other)
  Sender: FDA-Public Use
  Company Number: PHHY2013US127812

PATIENT
  Age: 75 Year
  Sex: Female
  Weight: 82.3 kg

DRUGS (5)
  1. DEFEROXAMINE [Suspect]
     Indication: HAEMOSIDEROSIS
     Dosage: 14 G, QMO
     Route: 042
     Dates: start: 20091105, end: 20130820
  2. IMDUR [Concomitant]
     Indication: HYPERTENSION
     Dosage: 1.0 MG, QD
  3. JANUVIA [Concomitant]
     Indication: DIABETES MELLITUS
     Dosage: 50 MG, QD
     Route: 048
  4. HYDRALAZINE [Concomitant]
     Indication: HYPERTENSION
     Dosage: 100 MG, QD
     Route: 048
  5. WARFARIN [Concomitant]
     Indication: ATRIAL FIBRILLATION
     Dosage: 5 MG, QD
     Route: 048

REACTIONS (5)
  - Optic neuropathy [Not Recovered/Not Resolved]
  - Vision blurred [Not Recovered/Not Resolved]
  - Visual impairment [Not Recovered/Not Resolved]
  - Retinal degeneration [Not Recovered/Not Resolved]
  - Colour blindness [Not Recovered/Not Resolved]
